FAERS Safety Report 16188668 (Version 8)
Quarter: 2024Q1

REPORT INFORMATION
  Report Type: Report from Study
  Country: CR (occurrence: CR)
  Receive Date: 20190412
  Receipt Date: 20240122
  Transmission Date: 20240409
  Serious: Yes (Hospitalization, Other)
  Sender: FDA-Public Use
  Company Number: PHHY2019CR022693

PATIENT
  Age: 46 Year
  Sex: Male
  Weight: 88.435 kg

DRUGS (3)
  1. SECUKINUMAB [Suspect]
     Active Substance: SECUKINUMAB
     Indication: Psoriatic arthropathy
     Dosage: 150 MG, QMO
     Route: 058
     Dates: start: 20190109
  2. SECUKINUMAB [Suspect]
     Active Substance: SECUKINUMAB
     Dosage: 150 MG, QMO
     Route: 058
     Dates: start: 202106
  3. SECUKINUMAB [Suspect]
     Active Substance: SECUKINUMAB
     Dosage: 150 MG, QMO
     Route: 058
     Dates: start: 20210701

REACTIONS (32)
  - Pruritus [Unknown]
  - Cellulitis [Unknown]
  - Arthritis infective [Unknown]
  - Headache [Unknown]
  - Fatigue [Unknown]
  - Insomnia [Unknown]
  - Pain [Recovered/Resolved]
  - Arthralgia [Recovered/Resolved]
  - Bone pain [Recovered/Resolved]
  - Pain in extremity [Recovered/Resolved]
  - Thrombosis [Unknown]
  - Arthralgia [Recovering/Resolving]
  - Vaccination site pain [Unknown]
  - Vaccination site inflammation [Recovered/Resolved]
  - Vaccination site infection [Recovering/Resolving]
  - Injection site swelling [Not Recovered/Not Resolved]
  - Pyrexia [Recovering/Resolving]
  - Peripheral swelling [Unknown]
  - Erythema [Unknown]
  - Gait disturbance [Unknown]
  - Inflammation [Not Recovered/Not Resolved]
  - Dry skin [Unknown]
  - Joint effusion [Unknown]
  - Scratch [Unknown]
  - Arthropathy [Unknown]
  - Joint swelling [Unknown]
  - Pain [Unknown]
  - Arthritis [Unknown]
  - Tachycardia [Unknown]
  - Fibrin D dimer increased [Unknown]
  - Injection site erythema [Unknown]
  - Injection site vesicles [Recovered/Resolved]

NARRATIVE: CASE EVENT DATE: 20190125
